FAERS Safety Report 7204174-9 (Version None)
Quarter: 2010Q4

REPORT INFORMATION
  Report Type: 
  Country: None (occurrence: None)
  Receive Date: 20101230
  Receipt Date: 20101222
  Transmission Date: 20110411
  Serious: Yes (Death)
  Sender: FDA-Public Use
  Company Number: US-ROCHE-742450

PATIENT
  Sex: Female
  Weight: 71.7 kg

DRUGS (1)
  1. AVASTIN [Suspect]
     Route: 042
     Dates: start: 20091229

REACTIONS (1)
  - ACUTE HEPATIC FAILURE [None]
